FAERS Safety Report 12192205 (Version 4)
Quarter: 2017Q3

REPORT INFORMATION
  Report Type: Report from Study
  Country: US (occurrence: US)
  Receive Date: 20160318
  Receipt Date: 20170828
  Transmission Date: 20171127
  Serious: Yes (Hospitalization, Other)
  Sender: FDA-Public Use
  Company Number: US-AMGEN-USASL2016032991

PATIENT
  Age: 54 Year
  Sex: Female
  Weight: 90.25 kg

DRUGS (2)
  1. ENBREL [Suspect]
     Active Substance: ETANERCEPT
     Indication: RHEUMATOID ARTHRITIS
     Dosage: 50 MG, QWK
     Route: 058
     Dates: start: 2008
  2. ENBREL [Suspect]
     Active Substance: ETANERCEPT
     Dosage: 50 MG, QWK
     Route: 065
     Dates: start: 20170815

REACTIONS (11)
  - Arthralgia [Unknown]
  - Hysterectomy [Recovered/Resolved]
  - Urinary incontinence [Unknown]
  - Product storage error [Unknown]
  - Mobility decreased [Unknown]
  - Colon cancer [Unknown]
  - Cystitis [Recovered/Resolved]
  - Pain [Unknown]
  - Condition aggravated [Unknown]
  - Sluggishness [Recovered/Resolved]
  - Bladder disorder [Recovered/Resolved]

NARRATIVE: CASE EVENT DATE: 2009
